FAERS Safety Report 6312511-2 (Version None)
Quarter: 2009Q3

REPORT INFORMATION
  Report Type: 
  Country: None (occurrence: None)
  Receive Date: 20090813
  Receipt Date: 20090804
  Transmission Date: 20100115
  Serious: Yes (Death)
  Sender: FDA-Public Use
  Company Number: 2009AL002565

PATIENT
  Age: 72 Year
  Sex: Female

DRUGS (63)
  1. DIGOXIN [Suspect]
     Dosage: 0.125MG, DAILY, PO
     Route: 048
     Dates: start: 20061024, end: 20070601
  2. ZINC SULFATE [Concomitant]
  3. AMBIEN [Concomitant]
  4. PREMARIN [Concomitant]
  5. HYDROCODONE [Concomitant]
  6. COREG [Concomitant]
  7. ISOSORBIDE DINITRATE [Concomitant]
  8. TERAZOSIN [Concomitant]
  9. POTASSIUM CHLORIDE [Concomitant]
  10. HYDRALAZINE HCL [Concomitant]
  11. METOCLOPRAMIDE [Concomitant]
  12. PREMARIN [Concomitant]
  13. DIATX [Concomitant]
  14. PREVACID [Concomitant]
  15. GLYCOLAX [Concomitant]
  16. COZAAR [Concomitant]
  17. WARFARIN [Concomitant]
  18. NORVASC [Concomitant]
  19. CARAFATE [Concomitant]
  20. ZOLPIDEM [Concomitant]
  21. LIPITOR [Concomitant]
  22. CARISOPRODOL [Concomitant]
  23. OMEPRAZOLE [Concomitant]
  24. FOLBEE PLUS [Concomitant]
  25. FUROSEMIDE [Concomitant]
  26. VYTORIN [Concomitant]
  27. DOXAZOSIN MESYLATE [Concomitant]
  28. BUMETANIDE [Concomitant]
  29. PROTONIX [Concomitant]
  30. ZOCOR [Concomitant]
  31. PROMETHAZINE [Concomitant]
  32. FLOR-CON [Concomitant]
  33. ZOLOFT [Concomitant]
  34. HYDRO-TUSSIN HC [Concomitant]
  35. PATANOL [Concomitant]
  36. TOBRADEX [Concomitant]
  37. AZITHROMYCIN [Concomitant]
  38. NEXIUM [Concomitant]
  39. SOTALOL HYDROCHLORIDE [Concomitant]
  40. CARVEDILOL [Concomitant]
  41. CEPHALEXIN [Concomitant]
  42. PROPPXY-N/APAP [Concomitant]
  43. PAROXETINE HCL [Concomitant]
  44. ZOLPIDEM TARTRATE [Concomitant]
  45. ALBUTEROL [Concomitant]
  46. BENZONATATE [Concomitant]
  47. LEVAQUIN [Concomitant]
  48. PREDNISONE [Concomitant]
  49. SULFAMETHOXAZOLE AND TRIMETHOPRIM [Concomitant]
  50. MEGESTROL ACETATE [Concomitant]
  51. RENAL CAPS SOFTGEL [Concomitant]
  52. CLONAZEPAM [Concomitant]
  53. PROCHLORPERAZINE [Concomitant]
  54. ACYCLOVIR [Concomitant]
  55. TEMAZEPAM [Concomitant]
  56. TRAMADOL HCL [Concomitant]
  57. PEG 3350 ELECTROLYTE SOLUTION [Concomitant]
  58. AMMONIUM LACTATE (12%) [Concomitant]
  59. LEXAPRO [Concomitant]
  60. SERTRALINE HCL [Concomitant]
  61. NIFEDICAL [Concomitant]
  62. PROCARDIA XL [Concomitant]
  63. CATAPRES-TTS-1 [Concomitant]

REACTIONS (4)
  - ECONOMIC PROBLEM [None]
  - INJURY [None]
  - SURGERY [None]
  - UNEVALUABLE EVENT [None]
